FAERS Safety Report 4839941-X (Version None)
Quarter: 2005Q4

REPORT INFORMATION
  Report Type: 
  Country: None (occurrence: None)
  Receive Date: 20051129
  Receipt Date: 20051114
  Transmission Date: 20060501
  Serious: Yes (Death, Hospitalization)
  Sender: FDA-Public Use
  Company Number: US-AMGEN-PRA157836

PATIENT
  Sex: Male
  Weight: 88 kg

DRUGS (7)
  1. PALIFERMIN [Suspect]
     Indication: MUCOSAL INFLAMMATION
     Route: 042
     Dates: start: 20051023, end: 20051023
  2. PALIFERMIN [Suspect]
     Route: 042
     Dates: start: 20051101, end: 20051101
  3. FILGRASTIM [Suspect]
     Route: 058
     Dates: start: 20051101, end: 20051101
  4. PALIFERMIN - PLACEBO [Concomitant]
     Route: 042
     Dates: start: 20051021, end: 20051021
  5. PALIFERMIN - PLACEBO [Concomitant]
     Route: 042
     Dates: start: 20051022, end: 20051022
  6. ETOPOSIDE [Concomitant]
     Route: 042
     Dates: start: 20051028, end: 20051028
  7. CYTOXAN [Concomitant]
     Route: 042
     Dates: start: 20051030, end: 20051030

REACTIONS (13)
  - ACUTE RESPIRATORY DISTRESS SYNDROME [None]
  - ASPIRATION [None]
  - CANDIDIASIS [None]
  - DISSEMINATED INTRAVASCULAR COAGULATION [None]
  - ERYTHEMA MULTIFORME [None]
  - FEBRILE NEUTROPENIA [None]
  - HODGKIN'S DISEASE [None]
  - HYPERGLYCAEMIA [None]
  - HYPOXIA [None]
  - PLATELET COUNT DECREASED [None]
  - RENAL IMPAIRMENT [None]
  - SEPTIC SHOCK [None]
  - STOMATITIS [None]
